FAERS Safety Report 11823076 (Version 2)
Quarter: 2015Q4

REPORT INFORMATION
  Report Type: Spontaneous
  Country: US (occurrence: US)
  Receive Date: 20151210
  Receipt Date: 20151215
  Transmission Date: 20160305
  Serious: Yes (Other)
  Sender: FDA-Public Use
  Company Number: US-PFIZER INC-2015433950

PATIENT
  Age: 29 Year
  Sex: Female
  Weight: 68 kg

DRUGS (7)
  1. SPIRONOLACTONE. [Suspect]
     Active Substance: SPIRONOLACTONE
     Dosage: 25 MG, 1X/DAY
     Route: 048
  2. ARMOUR THYROID [Concomitant]
     Active Substance: THYROID, PORCINE\THYROID, UNSPECIFIED
     Indication: HYPOTHYROIDISM
     Dosage: 60 MG, DAILY
     Route: 048
  3. SPIRONOLACTONE. [Suspect]
     Active Substance: SPIRONOLACTONE
     Dosage: 100 MG, 2X/DAY
     Route: 048
  4. SPIRONOLACTONE. [Suspect]
     Active Substance: SPIRONOLACTONE
     Indication: BLOOD TESTOSTERONE INCREASED
     Dosage: 100 MG, DAILY
  5. PROBIOTICS [Concomitant]
     Active Substance: PROBIOTICS NOS
     Indication: PROBIOTIC THERAPY
     Dosage: 1 DF, 1X/DAY
     Route: 048
  6. MULTIVITAMIN /07504101/ [Concomitant]
     Active Substance: VITAMINS
     Dosage: 1 DF, 1X/DAY
     Route: 048
  7. SPIRONOLACTONE. [Suspect]
     Active Substance: SPIRONOLACTONE
     Dosage: 200 MG, DAILY

REACTIONS (13)
  - Oedema [Recovered/Resolved]
  - Hypotension [Unknown]
  - Peripheral swelling [Unknown]
  - Dizziness [Unknown]
  - Drug dose omission [Unknown]
  - Facial pain [Recovered/Resolved]
  - Fungal infection [Not Recovered/Not Resolved]
  - Saliva analysis abnormal [Unknown]
  - Fluid retention [Recovered/Resolved]
  - Feeling abnormal [Unknown]
  - Pain [Recovered/Resolved]
  - Pollakiuria [Unknown]
  - Drug ineffective [Unknown]

NARRATIVE: CASE EVENT DATE: 20150929
